FAERS Safety Report 17871520 (Version 3)
Quarter: 2020Q3

REPORT INFORMATION
  Report Type: Spontaneous
  Country: US (occurrence: US)
  Receive Date: 20200608
  Receipt Date: 20200714
  Transmission Date: 20201103
  Serious: Yes (Hospitalization, Other)
  Sender: FDA-Public Use
  Company Number: US-SHIRE-US202018586

PATIENT
  Sex: Male
  Weight: 22 kg

DRUGS (10)
  1. GATTEX [Suspect]
     Active Substance: TEDUGLUTIDE\WATER
     Indication: SHORT-BOWEL SYNDROME
     Dosage: UNK UNK, UNKNOWN
     Route: 065
  2. CULTURELLE [Concomitant]
     Active Substance: LACTOBACILLUS RHAMNOSUS
     Indication: SUPPLEMENTATION THERAPY
  3. GATTEX [Suspect]
     Active Substance: TEDUGLUTIDE\WATER
     Dosage: 0.1 MILLILITER, 1X/DAY:QD
     Route: 058
     Dates: start: 20161206
  4. ENOXAPARIN [Suspect]
     Active Substance: ENOXAPARIN
     Indication: HAEMOSTASIS
     Dosage: 0.34 MILLIGRAM EVERY 12 HOURS
     Route: 058
     Dates: start: 20160912
  5. RIFAXIMIN. [Concomitant]
     Active Substance: RIFAXIMIN
     Indication: OVERGROWTH BACTERIAL
  6. LOPERAMIDE [Concomitant]
     Active Substance: LOPERAMIDE
     Indication: OVERGROWTH BACTERIAL
  7. ALBUTEROL. [Concomitant]
     Active Substance: ALBUTEROL
     Indication: BRONCHOPULMONARY DYSPLASIA
  8. RIFAXIMIN. [Concomitant]
     Active Substance: RIFAXIMIN
     Indication: DIARRHOEA
  9. CHOLECALCIFEROL [Concomitant]
     Active Substance: CHOLECALCIFEROL
     Indication: SUPPLEMENTATION THERAPY
  10. LOPERAMIDE [Concomitant]
     Active Substance: LOPERAMIDE
     Indication: DIARRHOEA

REACTIONS (2)
  - Small intestine ulcer [Not Recovered/Not Resolved]
  - Overgrowth bacterial [Not Recovered/Not Resolved]
